FAERS Safety Report 20382910 (Version 1)
Quarter: 2022Q1

REPORT INFORMATION
  Report Type: Spontaneous
  Country: US (occurrence: US)
  Receive Date: 20220127
  Receipt Date: 20220127
  Transmission Date: 20220423
  Serious: No
  Sender: FDA-Public Use
  Company Number: US-PFIZER INC-202101487786

PATIENT
  Age: 59 Year
  Sex: Female

DRUGS (1)
  1. IBRANCE [Suspect]
     Active Substance: PALBOCICLIB
     Indication: Breast cancer female
     Dosage: 75 MG
     Dates: start: 20211030

REACTIONS (4)
  - Decreased appetite [Unknown]
  - Vulvovaginal burning sensation [Unknown]
  - Bowel movement irregularity [Unknown]
  - Vomiting [Unknown]
